FAERS Safety Report 10447302 (Version 1)
Quarter: 2014Q3

REPORT INFORMATION
  Report Type: Spontaneous
  Country: US (occurrence: None)
  Receive Date: 20140910
  Receipt Date: 20140910
  Transmission Date: 20150326
  Serious: No
  Sender: FDA-Public Use
  Company Number: None

PATIENT

DRUGS (2)
  1. EPHEDRINE SULFATE. [Suspect]
     Active Substance: EPHEDRINE SULFATE
     Dosage: INJECTABLE, INJECTION, 50 MG/ML, AMPULE, 1 ML
     Route: 050
  2. ALFENTA [Suspect]
     Active Substance: ALFENTANIL HYDROCHLORIDE
     Dosage: INJECTABLE, INJECTION, 500 MCG/ML, AMPULE, 2 ML
     Route: 050

REACTIONS (1)
  - Product packaging confusion [None]
